FAERS Safety Report 4584693-4 (Version None)
Quarter: 2005Q1

REPORT INFORMATION
  Report Type: 
  Country: None (occurrence: None)
  Receive Date: 20050211
  Receipt Date: 20050201
  Transmission Date: 20050727
  Serious: Yes (Other)
  Sender: FDA-Public Use
  Company Number: 2005023367

PATIENT
  Age: 62 Year
  Sex: Female
  Weight: 81.6475 kg

DRUGS (5)
  1. ROGAINE [Suspect]
     Indication: ALOPECIA
     Dosage: 1 ML BID, TOPICAL
     Route: 061
     Dates: end: 20050101
  2. MULTIVITAMINS (ASCORBIC ACID/ERGOCALCIFEROL/FOLIC ACID/NICOTINAMIDE/PA [Concomitant]
  3. TOCOPHEROL (TOCOPHEROL) [Concomitant]
  4. CALCIUM (CALCIUM) [Concomitant]
  5. GLUCOSAMINE (GLUCOSAMINE) [Concomitant]

REACTIONS (2)
  - BREAST CANCER FEMALE [None]
  - HORMONE LEVEL ABNORMAL [None]
